FAERS Safety Report 9199548 (Version 2)
Quarter: 2013Q2

REPORT INFORMATION
  Report Type: Report from Study
  Country: AT (occurrence: AT)
  Receive Date: 20130329
  Receipt Date: 20130404
  Transmission Date: 20140414
  Serious: Yes (Hospitalization)
  Sender: FDA-Public Use
  Company Number: AT-AMGEN-AUTCT2013021409

PATIENT
  Age: 65 Year
  Sex: Female

DRUGS (5)
  1. DENOSUMAB [Suspect]
     Indication: BONE DENSITY DECREASED
     Dosage: 60 MG, UNK
     Dates: start: 20101013
  2. CONCOR COR [Concomitant]
     Dosage: 1.25 MG, BID
     Route: 048
     Dates: start: 20121128
  3. THROMBO ASS [Concomitant]
     Dosage: 10 MG, QD
     Route: 048
     Dates: start: 20101013
  4. PANTOLOC [Concomitant]
     Dosage: 40 MG, QD
     Route: 048
     Dates: start: 20120423
  5. AMLODIPIN [Concomitant]
     Dosage: 5 MG, QD
     Route: 048
     Dates: start: 20101013

REACTIONS (3)
  - Mental disorder [Recovered/Resolved]
  - Stress [Recovered/Resolved]
  - Alcohol poisoning [Recovered/Resolved]
